FAERS Safety Report 16325002 (Version 1)
Quarter: 2019Q2

REPORT INFORMATION
  Report Type: Spontaneous
  Country: US (occurrence: US)
  Receive Date: 20190516
  Receipt Date: 20190516
  Transmission Date: 20190711
  Serious: No
  Sender: FDA-Public Use
  Company Number: None

PATIENT
  Age: 72 Year
  Sex: Male
  Weight: 81 kg

DRUGS (16)
  1. VENLAFLAXINE [Concomitant]
     Active Substance: VENLAFAXINE HYDROCHLORIDE
  2. CETIRIZINE [Concomitant]
     Active Substance: CETIRIZINE HYDROCHLORIDE
  3. TRAZODONE [Suspect]
     Active Substance: TRAZODONE HYDROCHLORIDE
     Indication: INSOMNIA
     Dosage: ?          QUANTITY:30 TABLET(S);?
     Route: 048
     Dates: start: 20181101, end: 20181101
  4. MYCOPHENOLATE [Concomitant]
     Active Substance: MYCOPHENOLIC ACID
  5. LIFITEGRAST [Concomitant]
     Active Substance: LIFITEGRAST
  6. FAMOTIDINE. [Concomitant]
     Active Substance: FAMOTIDINE
  7. FLUTICASONE PROPIONATE. [Concomitant]
     Active Substance: FLUTICASONE PROPIONATE
  8. IMMUNE GLOBULIN [Concomitant]
  9. FINASTERIDE. [Concomitant]
     Active Substance: FINASTERIDE
  10. LACTULOSE. [Concomitant]
     Active Substance: LACTULOSE
  11. OMEGA 3 [Concomitant]
     Active Substance: OMEGA-3 FATTY ACIDS
  12. FISH OIL [Concomitant]
     Active Substance: FISH OIL
  13. BUPROPION. [Concomitant]
     Active Substance: BUPROPION
  14. TAMSULOSIN [Concomitant]
     Active Substance: TAMSULOSIN
  15. MULTIVITAMINS WITH MINERALS [Concomitant]
     Active Substance: MINERALS\VITAMINS
  16. LINOCLOTIDE [Concomitant]

REACTIONS (3)
  - Disorientation [None]
  - Confusional state [None]
  - Anxiety [None]

NARRATIVE: CASE EVENT DATE: 20181101
